FAERS Safety Report 5468080-2 (Version None)
Quarter: 2007Q3

REPORT INFORMATION
  Report Type: 
  Country: None (occurrence: None)
  Receive Date: 20070919
  Receipt Date: 20070919
  Transmission Date: 20080115
  Serious: Yes (Hospitalization)
  Sender: FDA-Public Use
  Company Number: None

PATIENT
  Sex: Male
  Weight: 77.6 kg

DRUGS (1)
  1. DAUNORUBICIN HCL [Suspect]
     Dosage: 240 MG
     Dates: end: 20030307

REACTIONS (2)
  - INFECTION [None]
  - PYREXIA [None]
